FAERS Safety Report 6398475-4 (Version None)
Quarter: 2009Q4

REPORT INFORMATION
  Report Type: 
  Country: None (occurrence: None)
  Receive Date: 20091013
  Receipt Date: 20091009
  Transmission Date: 20100525
  Serious: Yes (Other)
  Sender: FDA-Public Use
  Company Number: A0811425A

PATIENT
  Sex: Male
  Weight: 39 kg

DRUGS (4)
  1. FLIXOTIDE [Suspect]
     Indication: ASTHMA
     Dosage: 1PUFF TWICE PER DAY
     Route: 055
     Dates: start: 20040101
  2. FLONASE [Concomitant]
     Dosage: 1PUFF TWICE PER DAY
     Route: 055
     Dates: start: 20040101
  3. DIGOXIN [Concomitant]
     Dosage: 1TAB PER DAY
     Route: 048
     Dates: start: 19910101
  4. OMEPRAZOLE [Concomitant]
     Dosage: 2TAB TWICE PER DAY
     Dates: start: 20040101

REACTIONS (1)
  - LUNG OPERATION [None]
